FAERS Safety Report 15554045 (Version 2)
Quarter: 2019Q1

REPORT INFORMATION
  Report Type: Report from Study
  Country: US (occurrence: US)
  Receive Date: 20181026
  Receipt Date: 20190130
  Transmission Date: 20190417
  Serious: Yes (Death, Hospitalization)
  Sender: FDA-Public Use
  Company Number: US-BAYER-2018-035971

PATIENT
  Sex: Female
  Weight: 84.35 kg

DRUGS (6)
  1. XARELTO [Concomitant]
     Active Substance: RIVAROXABAN
     Dosage: UNK
  2. LETAIRIS [Concomitant]
     Active Substance: AMBRISENTAN
     Dosage: UNK
  3. ORENITRAM [Suspect]
     Active Substance: TREPROSTINIL
     Dosage: UNK
  4. ORENITRAM [Suspect]
     Active Substance: TREPROSTINIL
     Dosage: UNK
  5. ADEMPAS [Suspect]
     Active Substance: RIOCIGUAT
     Indication: PULMONARY ARTERIAL HYPERTENSION
     Dosage: UNK
     Dates: start: 20161205
  6. ADEMPAS [Suspect]
     Active Substance: RIOCIGUAT
     Indication: PULMONARY ARTERIAL HYPERTENSION
     Dosage: 2.5 MG, TID
     Route: 048

REACTIONS (5)
  - Headache [Unknown]
  - Localised infection [Unknown]
  - Death [Fatal]
  - Nausea [Unknown]
  - Infection [Not Recovered/Not Resolved]

NARRATIVE: CASE EVENT DATE: 2018
